FAERS Safety Report 5137720-X (Version None)
Quarter: 2006Q4

REPORT INFORMATION
  Report Type: 
  Country: None (occurrence: None)
  Receive Date: 20061030
  Receipt Date: 20051222
  Transmission Date: 20070319
  Serious: No
  Sender: FDA-Public Use
  Company Number: US-GLAXOSMITHKLINE-A0586833A

PATIENT
  Age: 45 Year
  Sex: Female

DRUGS (7)
  1. ADVAIR HFA [Suspect]
     Indication: CHRONIC OBSTRUCTIVE PULMONARY DISEASE
     Dosage: 1BLS TWICE PER DAY
     Route: 055
     Dates: start: 20050901
  2. ZYRTEC [Concomitant]
  3. XANAX [Concomitant]
  4. LEVOXYL [Concomitant]
  5. BUMEX [Concomitant]
  6. POTASSIUM ACETATE [Concomitant]
  7. COMBIVENT [Concomitant]

REACTIONS (6)
  - DYSPHONIA [None]
  - FATIGUE [None]
  - GLOSSODYNIA [None]
  - PAIN [None]
  - TONGUE DISORDER [None]
  - WEIGHT INCREASED [None]
